FAERS Safety Report 22372820 (Version 1)
Quarter: 2023Q2

REPORT INFORMATION
  Report Type: Spontaneous
  Country: US (occurrence: None)
  Receive Date: 20230525
  Receipt Date: 20230525
  Transmission Date: 20230721
  Serious: Yes (Other)
  Sender: FDA-Public Use
  Company Number: None

PATIENT
  Age: 24 Year
  Sex: Female
  Weight: 53.1 kg

DRUGS (1)
  1. BUPROPION [Suspect]
     Active Substance: BUPROPION
     Indication: Attention deficit hyperactivity disorder
     Dosage: OTHER QUANTITY : 1 TABLET(S);?FREQUENCY : DAILY;?
     Route: 048
     Dates: start: 20230508, end: 20230521

REACTIONS (10)
  - Cough [None]
  - Mechanical urticaria [None]
  - Drug ineffective [None]
  - Chest pain [None]
  - Wheezing [None]
  - Dyspnoea [None]
  - Abdominal pain [None]
  - Pain in extremity [None]
  - Back pain [None]
  - Agitation [None]

NARRATIVE: CASE EVENT DATE: 20230519
